FAERS Safety Report 18010267 (Version 1)
Quarter: 2020Q3

REPORT INFORMATION
  Report Type: Spontaneous
  Country: US (occurrence: US)
  Receive Date: 20200710
  Receipt Date: 20200710
  Transmission Date: 20201103
  Serious: Yes (Hospitalization)
  Sender: FDA-Public Use
  Company Number: US-ROCHE-2627215

PATIENT

DRUGS (2)
  1. RITUXAN [Suspect]
     Active Substance: RITUXIMAB
     Indication: PRODUCT USED FOR UNKNOWN INDICATION
     Dosage: RITUXAN 100MG/10ML 1 VIAL IV US
     Route: 042
  2. RITUXAN [Suspect]
     Active Substance: RITUXIMAB
     Dosage: RITUXAN 500MG/50ML 1 VIAL IV US
     Route: 042

REACTIONS (5)
  - Tremor [Unknown]
  - Peripheral coldness [Unknown]
  - Palpitations [Unknown]
  - Dyspnoea [Unknown]
  - Hyperhidrosis [Unknown]
